FAERS Safety Report 17775061 (Version 1)
Quarter: 2020Q2

REPORT INFORMATION
  Report Type: Spontaneous
  Country: US (occurrence: US)
  Receive Date: 20200512
  Receipt Date: 20200512
  Transmission Date: 20200714
  Serious: No
  Sender: FDA-Public Use
  Company Number: None

PATIENT
  Sex: Male

DRUGS (1)
  1. IMATINIB MESYLATE. [Suspect]
     Active Substance: IMATINIB MESYLATE
     Dosage: ?          QUANTITY:1 TABLET(S);?
     Route: 048

REACTIONS (3)
  - Limb mass [None]
  - Peripheral swelling [None]
  - Pruritus [None]
